FAERS Safety Report 6904229-X (Version None)
Quarter: 2010Q3

REPORT INFORMATION
  Report Type: 
  Country: None (occurrence: None)
  Receive Date: 20100804
  Receipt Date: 20090413
  Transmission Date: 20110219
  Serious: Yes (Other)
  Sender: FDA-Public Use
  Company Number: US-PFIZER INC-2009174664

PATIENT
  Age: 20 Year
  Sex: Male
  Weight: 72.562 kg

DRUGS (5)
  1. LYRICA [Suspect]
     Indication: CONVULSION
     Dosage: 200 MG, UNK
     Dates: start: 20080101
  2. LYRICA [Suspect]
     Dosage: UNK
     Dates: start: 20080401
  3. TRILEPTAL [Concomitant]
     Indication: CONVULSION
     Dosage: UNK
  4. LAMICTAL [Concomitant]
     Indication: CONVULSION
     Dosage: UNK
  5. ZOLOFT [Concomitant]
     Indication: ANXIETY
     Dosage: UNK
     Dates: start: 20080201

REACTIONS (6)
  - ABDOMINAL DISTENSION [None]
  - ASTHENIA [None]
  - EMOTIONAL DISORDER [None]
  - SKIN STRIAE [None]
  - SOCIAL PROBLEM [None]
  - WEIGHT INCREASED [None]
